FAERS Safety Report 15187195 (Version 1)
Quarter: 2018Q3

REPORT INFORMATION
  Report Type: Report from Study
  Country: US (occurrence: US)
  Receive Date: 20180723
  Receipt Date: 20180723
  Transmission Date: 20181010
  Serious: No
  Sender: FDA-Public Use
  Company Number: US-EXELIXIS-CABO-17011832

PATIENT
  Sex: Male

DRUGS (9)
  1. CERAVE [Concomitant]
  2. MIRTAZAPINE. [Concomitant]
     Active Substance: MIRTAZAPINE
  3. CABOMETYX [Suspect]
     Active Substance: CABOZANTINIB S-MALATE
     Indication: RENAL CANCER
     Dosage: 60 MG, QD
     Route: 048
     Dates: start: 20170802
  4. TAMSULOSIN HCL [Concomitant]
     Active Substance: TAMSULOSIN HYDROCHLORIDE
  5. TYLENOL [Concomitant]
     Active Substance: ACETAMINOPHEN
  6. MAGNESIUM [Concomitant]
     Active Substance: MAGNESIUM
  7. MULTIVITAMINS [Concomitant]
     Active Substance: VITAMINS
  8. NYSTATIN. [Concomitant]
     Active Substance: NYSTATIN
  9. LEVOTHYROXINE SODIUM. [Concomitant]
     Active Substance: LEVOTHYROXINE SODIUM

REACTIONS (1)
  - Diarrhoea [Unknown]
